FAERS Safety Report 6781849-7 (Version None)
Quarter: 2010Q2

REPORT INFORMATION
  Report Type: 
  Country: None (occurrence: None)
  Receive Date: 20100621
  Receipt Date: 20100611
  Transmission Date: 20101027
  Serious: Yes (Hospitalization)
  Sender: FDA-Public Use
  Company Number: PHHO2010CZ08886

PATIENT
  Sex: Female
  Weight: 81 kg

DRUGS (5)
  1. BLINDED ALISKIREN ALI+TAB+CF [Suspect]
     Dosage: CODE NOT BROKEN
     Route: 048
     Dates: start: 20091216
  2. BLINDED ENALAPRIL COMP-ENA+ [Suspect]
     Dosage: CODE NOT BROKEN
     Route: 048
     Dates: start: 20091216
  3. BLINDED NO TREATMENT RECEIVED NOMED [Suspect]
     Dosage: CODE NOT BROKEN
     Route: 048
     Dates: start: 20091216
  4. ALISKIREN [Suspect]
     Indication: CARDIAC FAILURE
  5. COMPARATOR ENALAPRIL [Suspect]
     Indication: CARDIAC FAILURE

REACTIONS (3)
  - DISEASE PROGRESSION [None]
  - DRUG INEFFECTIVE [None]
  - DYSPNOEA [None]
